FAERS Safety Report 24405507 (Version 1)
Quarter: 2024Q4

REPORT INFORMATION
  Report Type: Spontaneous
  Country: PT (occurrence: PT)
  Receive Date: 20241007
  Receipt Date: 20241007
  Transmission Date: 20250115
  Serious: Yes (Other)
  Sender: MERCK
  Company Number: PT-009507513-2410PRT001344

PATIENT
  Age: 73 Year
  Sex: Male

DRUGS (11)
  1. PEMBROLIZUMAB [Suspect]
     Active Substance: PEMBROLIZUMAB
     Indication: Adenocarcinoma gastric
     Dosage: 200MG, EVERY 21 DAYS
     Dates: start: 202307
  2. PEMBROLIZUMAB [Suspect]
     Active Substance: PEMBROLIZUMAB
     Dosage: 200MG, EVERY 21 DAYS
     Dates: start: 202309, end: 202309
  3. PEMBROLIZUMAB [Suspect]
     Active Substance: PEMBROLIZUMAB
     Dosage: 200MG, EVERY 21 DAYS
     Dates: start: 202310, end: 202310
  4. PEMBROLIZUMAB [Suspect]
     Active Substance: PEMBROLIZUMAB
     Dosage: 200MG, EVERY 21 DAYS
     Dates: start: 202403, end: 202403
  5. PEMBROLIZUMAB [Suspect]
     Active Substance: PEMBROLIZUMAB
     Dosage: 200MG, EVERY 21 DAYS
     Dates: start: 202404, end: 202404
  6. PEMBROLIZUMAB [Suspect]
     Active Substance: PEMBROLIZUMAB
     Dosage: 200MG, EVERY 21 DAYS
     Dates: start: 202407, end: 202407
  7. PEMBROLIZUMAB [Suspect]
     Active Substance: PEMBROLIZUMAB
     Dosage: 200MG, EVERY 21 DAYS
     Dates: start: 202409, end: 202409
  8. ESOMEPRAZOLE [Concomitant]
     Active Substance: ESOMEPRAZOLE
     Dosage: 20 MILLIGRAM, 1 TABLET IN FASTING
     Route: 048
  9. NEBIVOLOL [Concomitant]
     Active Substance: NEBIVOLOL
     Dosage: 2.5 MILLIGRAM, 1 TABLET AT BREAKFAST + 1 TABLET AT DINNER
     Route: 048
  10. ATORVASTATIN [Concomitant]
     Active Substance: ATORVASTATIN
     Dosage: 20 MILLIGRAM, 1 TABLET AT DINNER
     Route: 048
  11. HYDROCHLOROTHIAZIDE\IRBESARTAN [Concomitant]
     Active Substance: HYDROCHLOROTHIAZIDE\IRBESARTAN
     Dosage: 300 + 5 MG, 1 TABLET AT BREAKFAST
     Route: 048

REACTIONS (7)
  - Hepatotoxicity [Unknown]
  - Malignant neoplasm progression [Unknown]
  - Anaemia [Unknown]
  - Therapy partial responder [Unknown]
  - Balance disorder [Unknown]
  - Fall [Unknown]
  - Nausea [Unknown]

NARRATIVE: CASE EVENT DATE: 20230901
